FAERS Safety Report 14896424 (Version 3)
Quarter: 2018Q2

REPORT INFORMATION
  Report Type: Spontaneous
  Country: JP (occurrence: JP)
  Receive Date: 20180515
  Receipt Date: 20180531
  Transmission Date: 20180711
  Serious: No
  Sender: FDA-Public Use
  Company Number: JP-ASTRAZENECA-2018SE62117

PATIENT
  Age: 86 Year
  Sex: Female
  Weight: 46 kg

DRUGS (11)
  1. SINGULAIR [Concomitant]
     Active Substance: MONTELUKAST SODIUM
     Indication: ASTHMA
     Route: 048
     Dates: start: 20160222
  2. SPIRIVA [Concomitant]
     Active Substance: TIOTROPIUM BROMIDE MONOHYDRATE
     Indication: ASTHMA
     Route: 055
     Dates: start: 20160912
  3. CLARITH [Concomitant]
     Active Substance: CLARITHROMYCIN
     Indication: ASTHMA
     Route: 048
     Dates: start: 2007
  4. SANCOBA [Concomitant]
     Active Substance: CYANOCOBALAMIN
     Route: 047
  5. KARY UNI [Concomitant]
     Active Substance: PIRENOXINE
     Route: 047
  6. SYMBICORT [Concomitant]
     Active Substance: BUDESONIDE\FORMOTEROL FUMARATE DIHYDRATE
     Indication: ASTHMA
     Route: 055
     Dates: start: 20130807
  7. HYALEIN [Concomitant]
     Active Substance: HYALURONATE SODIUM
     Route: 047
  8. PREDONINE [Suspect]
     Active Substance: PREDNISOLONE
     Dosage: DOSE UNKNOWN, AS REQUIRED
     Route: 048
  9. CLEANAL [Concomitant]
     Active Substance: FUDOSTEINE
     Indication: ASTHMA
     Route: 048
     Dates: start: 20170524
  10. THEOLONG [Concomitant]
     Active Substance: THEOPHYLLINE ANHYDROUS
     Indication: ASTHMA
     Route: 048
     Dates: start: 2007
  11. FASENRA [Suspect]
     Active Substance: BENRALIZUMAB
     Indication: ASTHMA
     Dosage: 30.0ML UNKNOWN
     Route: 058
     Dates: start: 20180502, end: 20180502

REACTIONS (6)
  - Diarrhoea [Recovered/Resolved]
  - Myalgia [Recovered/Resolved]
  - Chest pain [Recovering/Resolving]
  - Nausea [Unknown]
  - Herpes zoster [Recovered/Resolved]
  - Pyrexia [Recovered/Resolved]

NARRATIVE: CASE EVENT DATE: 20180502
